FAERS Safety Report 4800423-2 (Version None)
Quarter: 2005Q4

REPORT INFORMATION
  Report Type: 
  Country: None (occurrence: None)
  Receive Date: 20051017
  Receipt Date: 20050420
  Transmission Date: 20060501
  Serious: Yes (Hospitalization, Other)
  Sender: FDA-Public Use
  Company Number: PHEH2005US04560

PATIENT
  Age: 79 Year
  Sex: Female

DRUGS (8)
  1. ZOMETA [Suspect]
     Indication: MULTIPLE MYELOMA
     Dosage: 4 MG QMONTH
     Dates: start: 20020501, end: 20050701
  2. ANTICOAGULANTS [Concomitant]
  3. MELPHALAN [Concomitant]
     Indication: MULTIPLE MYELOMA
  4. PREDNISONE [Concomitant]
     Indication: MULTIPLE MYELOMA
  5. THALOMID [Concomitant]
     Indication: MULTIPLE MYELOMA
  6. DECADRON #1 [Concomitant]
     Indication: MULTIPLE MYELOMA
  7. VELCADE [Concomitant]
     Indication: MULTIPLE MYELOMA
  8. AREDIA [Suspect]
     Indication: MULTIPLE MYELOMA
     Dosage: 90 MG QMONTH
     Dates: start: 20000201, end: 20020401

REACTIONS (9)
  - BONE DEBRIDEMENT [None]
  - BONE DISORDER [None]
  - BONE LESION [None]
  - DENTURE WEARER [None]
  - OSTEOMYELITIS [None]
  - OSTEONECROSIS [None]
  - PNEUMONIA [None]
  - PYREXIA [None]
  - TOOTH EXTRACTION [None]
